FAERS Safety Report 7361488-X (Version None)
Quarter: 2011Q1

REPORT INFORMATION
  Report Type: 
  Country: None (occurrence: None)
  Receive Date: 20110318
  Receipt Date: 20110307
  Transmission Date: 20110831
  Serious: Yes (Other)
  Sender: FDA-Public Use
  Company Number: PHHY2011US01200

PATIENT
  Sex: Male

DRUGS (1)
  1. ELIDEL [Suspect]
     Indication: SKIN CANCER
     Dosage: 60 G, BID
     Route: 061
     Dates: start: 20020101

REACTIONS (4)
  - SKIN DISORDER [None]
  - JAW DISORDER [None]
  - SKIN CANCER [None]
  - SKIN DISCOLOURATION [None]
